FAERS Safety Report 13659060 (Version 2)
Quarter: 2017Q3

REPORT INFORMATION
  Report Type: Spontaneous
  Country: JP (occurrence: JP)
  Receive Date: 20170616
  Receipt Date: 20170711
  Transmission Date: 20171127
  Serious: Yes (Other)
  Sender: FDA-Public Use
  Company Number: JP-BAXALTA-2017BXJ005629

PATIENT
  Age: 16 Year
  Sex: Male

DRUGS (6)
  1. FEIBA NF [Suspect]
     Active Substance: ANTI-INHIBITOR COAGULANT COMPLEX
     Dosage: 60 IU/KG, 2X A WEEK
     Route: 042
     Dates: start: 2014, end: 2014
  2. FEIBA NF [Suspect]
     Active Substance: ANTI-INHIBITOR COAGULANT COMPLEX
     Dosage: 60 IU/KG, 3X A WEEK
     Route: 042
     Dates: start: 2014, end: 2017
  3. FEIBA NF [Suspect]
     Active Substance: ANTI-INHIBITOR COAGULANT COMPLEX
     Dosage: 80 IU/KG, 3X A WEEK
     Route: 042
     Dates: start: 2017, end: 2017
  4. FEIBA NF [Suspect]
     Active Substance: ANTI-INHIBITOR COAGULANT COMPLEX
     Dosage: 100 IU/KG, 3X A WEEK
     Route: 042
     Dates: start: 2017, end: 2017
  5. FEIBA NF [Suspect]
     Active Substance: ANTI-INHIBITOR COAGULANT COMPLEX
     Indication: FACTOR VIII INHIBITION
     Dosage: 60 IU/KG, 3X A WEEK
     Route: 042
     Dates: start: 2011, end: 2014
  6. NOVOSEVEN [Concomitant]
     Active Substance: COAGULATION FACTOR VIIA RECOMBINANT HUMAN
     Indication: FACTOR VIII INHIBITION
     Dosage: UNK
     Dates: end: 2011

REACTIONS (2)
  - Haemarthrosis [Unknown]
  - Haemorrhage [Unknown]
